FAERS Safety Report 23877751 (Version 1)
Quarter: 2024Q2

REPORT INFORMATION
  Report Type: Report from Study
  Country: CN (occurrence: CN)
  Receive Date: 20240521
  Receipt Date: 20240521
  Transmission Date: 20240716
  Serious: Yes (Other)
  Sender: FDA-Public Use
  Company Number: CN-002147023-NVSC2024CN098298

PATIENT
  Age: 54 Year
  Sex: Female
  Weight: 56 kg

DRUGS (2)
  1. COSENTYX [Suspect]
     Active Substance: SECUKINUMAB
     Indication: Psoriasis
     Dosage: 2 DOSAGE FORM, OTHER (2 INJECTIONS EVERY 1.5 MONTHS)
     Route: 058
     Dates: start: 202306
  2. COSENTYX [Suspect]
     Active Substance: SECUKINUMAB
     Dosage: (ONCE EVERY 1.5 MONTHS)
     Route: 058
     Dates: start: 202403

REACTIONS (10)
  - Anal ulcer [Not Recovered/Not Resolved]
  - Ulcer [Not Recovered/Not Resolved]
  - Skin fissures [Not Recovered/Not Resolved]
  - Eye ulcer [Unknown]
  - Eye discharge [Unknown]
  - Eye pain [Unknown]
  - Anal fissure [Not Recovered/Not Resolved]
  - Mouth ulceration [Not Recovered/Not Resolved]
  - Ocular discomfort [Unknown]
  - Blepharitis [Unknown]

NARRATIVE: CASE EVENT DATE: 20230101
